FAERS Safety Report 18609729 (Version 1)
Quarter: 2020Q4

REPORT INFORMATION
  Report Type: Report from Study
  Country: FR (occurrence: FR)
  Receive Date: 20201214
  Receipt Date: 20201214
  Transmission Date: 20210114
  Serious: Yes (Hospitalization)
  Sender: FDA-Public Use
  Company Number: FR-ROCHE-2727632

PATIENT

DRUGS (2)
  1. BEVACIZUMAB. [Suspect]
     Active Substance: BEVACIZUMAB
     Indication: NON-SMALL CELL LUNG CANCER
     Route: 065
     Dates: start: 20150420, end: 20150601
  2. TEMOZOLOMIDE. [Suspect]
     Active Substance: TEMOZOLOMIDE
     Indication: NON-SMALL CELL LUNG CANCER
     Route: 065
     Dates: start: 20150420, end: 20150522

REACTIONS (2)
  - Anaemia [Recovered/Resolved]
  - Transfusion related complication [Recovered/Resolved]

NARRATIVE: CASE EVENT DATE: 20150607
